FAERS Safety Report 7354267-0 (Version None)
Quarter: 2011Q1

REPORT INFORMATION
  Report Type: 
  Country: None (occurrence: None)
  Receive Date: 20110316
  Receipt Date: 20110308
  Transmission Date: 20110831
  Serious: No
  Sender: FDA-Public Use
  Company Number: US-BIOGENIDEC-2011BI009090

PATIENT
  Age: 43 Year
  Sex: Female

DRUGS (2)
  1. TYSABRI [Suspect]
     Indication: MULTIPLE SCLEROSIS
     Route: 042
     Dates: start: 20070725, end: 20100427
  2. TYSABRI [Suspect]
     Route: 042
     Dates: start: 20101111

REACTIONS (3)
  - STRESS [None]
  - HOT FLUSH [None]
  - BLOOD PRESSURE INCREASED [None]
